FAERS Safety Report 8362930-8 (Version None)
Quarter: 2012Q2

REPORT INFORMATION
  Report Type: 
  Country: None (occurrence: None)
  Receive Date: 20120516
  Receipt Date: 20120423
  Transmission Date: 20120825
  Serious: No
  Sender: FDA-Public Use
  Company Number: US-MYLANLABS-2012S1003213

PATIENT
  Age: 79 Year
  Sex: Female

DRUGS (10)
  1. ISOSORBIDE MONONITRATE [Suspect]
     Indication: HYPERTENSION
  2. ASPIRIN [Concomitant]
     Route: 048
  3. PAMELOR [Concomitant]
     Route: 048
  4. DONEPEZIL HYDROCHLORIDE [Suspect]
     Indication: CONFUSIONAL STATE
     Route: 048
     Dates: start: 20120120, end: 20120207
  5. LASIX [Concomitant]
     Route: 048
  6. DONEPEZIL HYDROCHLORIDE [Suspect]
     Indication: DEPRESSED LEVEL OF CONSCIOUSNESS
     Route: 048
     Dates: start: 20120120, end: 20120207
  7. ATORVASTATIN CALCIUM [Concomitant]
     Route: 048
  8. SPIRONOLACTONE [Concomitant]
     Route: 048
  9. BENICAR [Concomitant]
     Route: 048
  10. LORATADINE [Concomitant]
     Route: 048

REACTIONS (6)
  - PHARYNGEAL OEDEMA [None]
  - RASH [None]
  - RASH ERYTHEMATOUS [None]
  - DERMATITIS ALLERGIC [None]
  - PRURITUS [None]
  - REACTION TO DRUG EXCIPIENTS [None]
